FAERS Safety Report 7577657-X (Version None)
Quarter: 2011Q2

REPORT INFORMATION
  Report Type: 
  Country: None (occurrence: None)
  Receive Date: 20110621
  Receipt Date: 20110606
  Transmission Date: 20111010
  Serious: Yes (Death, Other)
  Sender: FDA-Public Use
  Company Number: 2011MA006873

PATIENT
  Age: 32 Year
  Sex: Male

DRUGS (8)
  1. CITALOPRAM HYDROBROMIDE [Suspect]
  2. COCAINE (COCAINE) [Suspect]
  3. TETRAHYDROCANNABINOL (TETRAHYDROCANNABINOL) [Suspect]
  4. AMPHETAMINE SULFATE [Suspect]
  5. ACETAMINOPHEN [Concomitant]
  6. SODIUM OXYBATE [Suspect]
  7. MORPHINE [Concomitant]
  8. HEROIN (DIAMORPHINE) [Suspect]

REACTIONS (2)
  - TOXICITY TO VARIOUS AGENTS [None]
  - OVERDOSE [None]
